FAERS Safety Report 5192225-5 (Version None)
Quarter: 2006Q4

REPORT INFORMATION
  Report Type: 
  Country: None (occurrence: None)
  Receive Date: 20061220
  Receipt Date: 20061204
  Transmission Date: 20070319
  Serious: Yes (Other)
  Sender: FDA-Public Use
  Company Number: 2006153986

PATIENT
  Sex: Female

DRUGS (2)
  1. ELETRIPTAN                 (ELETRIPTAN) [Suspect]
     Indication: MIGRAINE
  2. ALL OTHER THERAPEUTIC PRODUCTS [Concomitant]

REACTIONS (1)
  - RETINAL HAEMORRHAGE [None]
